FAERS Safety Report 23162377 (Version 5)
Quarter: 2024Q1

REPORT INFORMATION
  Report Type: Report from Study
  Country: US (occurrence: US)
  Receive Date: 20231109
  Receipt Date: 20240321
  Transmission Date: 20240410
  Serious: Yes (Other)
  Sender: FDA-Public Use
  Company Number: US-SA-2018SA267326

PATIENT
  Age: 57 Year
  Sex: Male

DRUGS (4)
  1. AGALSIDASE BETA [Suspect]
     Active Substance: AGALSIDASE BETA
     Indication: Fabry^s disease
     Dosage: 90 MG, QOW
     Route: 042
     Dates: start: 20031216
  2. CRESTOR [Concomitant]
     Active Substance: ROSUVASTATIN CALCIUM
     Dosage: UNK
  3. ASPIRIN [Concomitant]
     Active Substance: ASPIRIN
     Dosage: UNK
  4. LOSARTAN [Concomitant]
     Active Substance: LOSARTAN
     Dosage: UNK

REACTIONS (12)
  - Congenital cystic kidney disease [Unknown]
  - Cardiac flutter [Not Recovered/Not Resolved]
  - Tunnel vision [Not Recovered/Not Resolved]
  - Stress [Unknown]
  - Temperature intolerance [Unknown]
  - Depression [Unknown]
  - Blood pressure fluctuation [Unknown]
  - Cardiomegaly [Unknown]
  - Hypoacusis [Not Recovered/Not Resolved]
  - Feeling hot [Unknown]
  - Pruritus [Not Recovered/Not Resolved]
  - Asthenia [Unknown]
